FAERS Safety Report 7757994-6 (Version None)
Quarter: 2011Q3

REPORT INFORMATION
  Report Type: 
  Country: None (occurrence: None)
  Receive Date: 20110919
  Receipt Date: 20110908
  Transmission Date: 20111222
  Serious: No
  Sender: FDA-Public Use
  Company Number: US-BIOGENIDEC-2010BI018081

PATIENT
  Sex: Female

DRUGS (5)
  1. TYSABRI [Suspect]
     Indication: MULTIPLE SCLEROSIS
     Route: 042
     Dates: start: 20080827
  2. SEROQUEL [Concomitant]
     Indication: DEPRESSION
  3. LUNESTA [Concomitant]
     Indication: INSOMNIA
     Dates: start: 20110101
  4. CYMBALTA [Concomitant]
     Indication: DEPRESSION
  5. LORAZEPAM [Concomitant]
     Indication: ANXIETY

REACTIONS (7)
  - PARAESTHESIA [None]
  - BURNING SENSATION [None]
  - FATIGUE [None]
  - MEMORY IMPAIRMENT [None]
  - PAIN IN EXTREMITY [None]
  - HEADACHE [None]
  - ERYTHEMA [None]
